FAERS Safety Report 13988510 (Version 2)
Quarter: 2017Q4

REPORT INFORMATION
  Report Type: Report from Study
  Country: US (occurrence: US)
  Receive Date: 20170919
  Receipt Date: 20171013
  Transmission Date: 20180321
  Serious: Yes (Death, Hospitalization)
  Sender: FDA-Public Use
  Company Number: US-EXELIXIS-CABO-17010525

PATIENT
  Age: 77 Year
  Sex: Male

DRUGS (17)
  1. ASPIRIN. [Concomitant]
     Active Substance: ASPIRIN
  2. NEURONTIN [Concomitant]
     Active Substance: GABAPENTIN
  3. LIDOCAINE-DIPHENHYDRAMINE-AL-MAG-SIM [Concomitant]
  4. MAG OXIDE [Concomitant]
     Active Substance: MAGNESIUM OXIDE
  5. SINGULAIR [Concomitant]
     Active Substance: MONTELUKAST SODIUM
  6. CABOMETYX [Suspect]
     Active Substance: CABOZANTINIB S-MALATE
     Indication: LUNG NEOPLASM MALIGNANT
     Dosage: 60 MG, QD
     Route: 048
     Dates: start: 20170718, end: 20170809
  7. PLAQUENIL [Concomitant]
     Active Substance: HYDROXYCHLOROQUINE SULFATE
  8. CLARITIN [Concomitant]
     Active Substance: LORATADINE
  9. METOPROLOL. [Concomitant]
     Active Substance: METOPROLOL
  10. PRILOSEC [Concomitant]
     Active Substance: OMEPRAZOLE MAGNESIUM
  11. CABOMETYX [Suspect]
     Active Substance: CABOZANTINIB S-MALATE
     Dosage: 60 MG, QD
     Route: 048
     Dates: start: 20170822, end: 20170829
  12. CULTURELLE [Concomitant]
     Active Substance: LACTOBACILLUS RHAMNOSUS
  13. VALSARTAN. [Concomitant]
     Active Substance: VALSARTAN
  14. DEXAMETHASONE. [Concomitant]
     Active Substance: DEXAMETHASONE
  15. EMLA [Concomitant]
     Active Substance: LIDOCAINE\PRILOCAINE
  16. ALBUTEROL. [Concomitant]
     Active Substance: ALBUTEROL
  17. LEXAPRO [Concomitant]
     Active Substance: ESCITALOPRAM OXALATE

REACTIONS (3)
  - Cardiac arrest [Fatal]
  - Malignant neoplasm progression [Fatal]
  - Off label use [Unknown]

NARRATIVE: CASE EVENT DATE: 20170903
